FAERS Safety Report 9170079 (Version 1)
Quarter: 2013Q1

REPORT INFORMATION
  Report Type: Spontaneous
  Country: FR (occurrence: None)
  Receive Date: 20130311
  Receipt Date: 20130311
  Transmission Date: 20140127
  Serious: Yes (Hospitalization, Other)
  Sender: FDA-Public Use
  Company Number: 2013P1002616

PATIENT
  Sex: 0

DRUGS (2)
  1. AMLODIPINE [Suspect]
  2. RISPERIDONE [Suspect]

REACTIONS (1)
  - Faecaloma [None]
